FAERS Safety Report 4907868-0 (Version None)
Quarter: 2006Q1

REPORT INFORMATION
  Report Type: 
  Country: None (occurrence: None)
  Receive Date: 20060210
  Receipt Date: 20060202
  Transmission Date: 20060701
  Serious: Yes (Hospitalization)
  Sender: FDA-Public Use
  Company Number: 2006UW01997

PATIENT
  Age: 97 Year
  Sex: Female

DRUGS (4)
  1. LOSEC [Suspect]
     Indication: REFLUX OESOPHAGITIS
     Route: 048
     Dates: end: 20051201
  2. LOSEC [Suspect]
     Route: 048
     Dates: start: 20060202
  3. GLYBURIDE [Concomitant]
     Indication: DIABETES MELLITUS
  4. BLOOD PRESSURE PILLS [Concomitant]

REACTIONS (6)
  - DIARRHOEA [None]
  - DYSPHAGIA [None]
  - FLATULENCE [None]
  - HIATUS HERNIA [None]
  - NAUSEA [None]
  - VOMITING [None]
